FAERS Safety Report 9295461 (Version 1)
Quarter: 2013Q1

REPORT INFORMATION
  Report Type: Spontaneous
  Country: US (occurrence: None)
  Receive Date: 20121227
  Receipt Date: 20121227
  Transmission Date: 20140127
  Serious: No
  Sender: FDA-Public Use
  Company Number: PHEH2012US020614

PATIENT
  Age: 37 Year
  Sex: Female

DRUGS (9)
  1. AFINITOR [Suspect]
     Indication: TUBEROUS SCLEROSIS
     Route: 048
     Dates: start: 20120725
  2. CELEXA (CITALOPRAM HYDROBROMIDE) [Concomitant]
  3. LAMOTRIGINE (LAMOTRIGINE) [Concomitant]
  4. IRON SUPPLEMENTS (NO INGREDIENTS/SUBSTANCES) [Concomitant]
  5. VITAMINS NOS (VITAMINS NOS) [Concomitant]
  6. PHENTOLAMINE (PHENOTOLAMINE) [Concomitant]
  7. METFORMIN (METFORMIN) [Concomitant]
  8. ZYPREXA (OLANZAPINE) [Concomitant]
  9. LEVORA (ETHINYLESTRADIOL. LEVONORGESTREL) [Concomitant]

REACTIONS (4)
  - Incontinence [None]
  - Urinary tract infection [None]
  - Rash [None]
  - Acne [None]
